FAERS Safety Report 7537343-9 (Version None)
Quarter: 2011Q2

REPORT INFORMATION
  Report Type: 
  Country: None (occurrence: None)
  Receive Date: 20110609
  Receipt Date: 20110606
  Transmission Date: 20111010
  Serious: Yes (Other)
  Sender: FDA-Public Use
  Company Number: GB-MERCK-1106GBR00026

PATIENT
  Age: 89 Year
  Sex: Female
  Weight: 53 kg

DRUGS (10)
  1. CALCIUM CARBONATE AND CHOLECALCIFEROL [Concomitant]
     Route: 065
  2. PRAVASTATIN SODIUM [Concomitant]
     Route: 065
  3. FERROUS FUMARATE [Concomitant]
     Route: 065
  4. INSULIN DETEMIR [Concomitant]
     Route: 065
  5. FOSAMAX [Suspect]
     Indication: OSTEOPOROSIS
     Route: 048
  6. DOCUSATE SODIUM [Concomitant]
     Route: 065
  7. OMEPRAZOLE [Concomitant]
     Route: 065
  8. LOSARTAN POTASSIUM [Concomitant]
     Route: 048
  9. CITALOPRAM [Concomitant]
     Route: 065
  10. ACETAMINOPHEN [Concomitant]
     Route: 065

REACTIONS (3)
  - MELAENA [None]
  - OESOPHAGEAL ULCER [None]
  - HYPOTENSION [None]
